FAERS Safety Report 7727454-7 (Version None)
Quarter: 2011Q3

REPORT INFORMATION
  Report Type: 
  Country: None (occurrence: None)
  Receive Date: 20110902
  Receipt Date: 20110824
  Transmission Date: 20111222
  Serious: Yes (Death, Hospitalization, Other)
  Sender: FDA-Public Use
  Company Number: CH-PFIZER INC-2011143133

PATIENT
  Age: 61 Year
  Sex: Male
  Weight: 85 kg

DRUGS (23)
  1. LORAZEPAM [Concomitant]
     Indication: RESTLESSNESS
     Dosage: 1 MG, AS NEEDED
     Route: 048
  2. METOCLOPRAMIDE HYDROCHLORIDE [Concomitant]
     Indication: NAUSEA
     Dosage: 10 MG, AS NEEDED
  3. LORAZEPAM [Concomitant]
     Indication: NERVOUSNESS
  4. TORSEMIDE [Concomitant]
     Indication: OEDEMA
     Dosage: 10 MG (1-0-0), 1X/DAY
     Route: 048
  5. CALCIUM VITAMIN D3 [Concomitant]
     Dosage: 500 MG (1-0-1), 2X/DAY
     Route: 048
  6. DUPHALAC [Concomitant]
     Dosage: 10 ML, 1X/DAY
     Dates: start: 20110623
  7. MAGNESIUM [Concomitant]
     Indication: MUSCLE SPASMS
     Dosage: 1 DF, UNK
     Dates: start: 20110703
  8. ASPIRIN [Concomitant]
     Indication: TRANSIENT ISCHAEMIC ATTACK
     Dosage: 100 MG (1-0-0), 1X/DAY
     Route: 048
  9. RESYL PLUS [Concomitant]
     Indication: COUGH
     Dosage: 60 DROPS (20-20-20), DAILY
     Route: 048
  10. PANTOPRAZOLE [Concomitant]
     Indication: GASTRITIS
     Dosage: 40 MG (1-0-0), 1X/DAY
     Route: 048
  11. DOSPIR [Concomitant]
     Dosage: 1 DF(1-1-1), 3X/DAY
  12. ACETAMINOPHEN [Concomitant]
     Indication: HEADACHE
  13. TRANSIPEG [Concomitant]
     Indication: CONSTIPATION
     Dosage: 2 DF (2-2-0), 2X/DAY
     Route: 048
     Dates: start: 20110707
  14. FEIGENSIRUP [Concomitant]
     Dosage: 10 ML, AS NEEDED
     Dates: start: 20110623
  15. DULCOLAX [Concomitant]
     Dosage: 2 DF, UNK
     Dates: start: 20110704
  16. CRIZOTINIB [Suspect]
     Indication: NON-SMALL CELL LUNG CANCER
     Dosage: 250 MG, 2X/DAY
     Route: 048
     Dates: start: 20110203
  17. PREDNISONE [Concomitant]
     Indication: DYSPNOEA
     Dosage: 10 MG (1-0-0), 1X/DAY
     Route: 048
  18. LAXOBERON [Concomitant]
     Indication: CONSTIPATION
     Dosage: 15 GTT, 1X/DAY
  19. FRESUBIN ENERGY [Concomitant]
     Dosage: UNK
  20. LAXOBERON [Concomitant]
     Dosage: UNK GTT, AS NEEDED
     Dates: start: 20110620, end: 20110703
  21. PANTOPRAZOLE [Concomitant]
     Dosage: 20 MG, 1X/DAY
     Route: 048
  22. MORPHINE [Concomitant]
     Dosage: 5 MG, AS NEEDED
  23. ACETAMINOPHEN [Concomitant]
     Indication: PAIN
     Dosage: UNK

REACTIONS (7)
  - DEATH [None]
  - PULMONARY EMBOLISM [None]
  - CONVULSION [None]
  - HYPOALBUMINAEMIA [None]
  - OEDEMA PERIPHERAL [None]
  - DYSPNOEA [None]
  - SOMNOLENCE [None]
